FAERS Safety Report 9695349 (Version 1)
Quarter: 2013Q4

REPORT INFORMATION
  Report Type: Spontaneous
  Country: US (occurrence: None)
  Receive Date: 20131118
  Receipt Date: 20131118
  Transmission Date: 20140711
  Serious: Yes (Disabling)
  Sender: FDA-Public Use
  Company Number: None

PATIENT
  Age: 26 Year
  Sex: Male
  Weight: 83.92 kg

DRUGS (1)
  1. FINASTERIDE 1 MG [Suspect]
     Indication: ALOPECIA
     Dosage: 1 PILL ONCE DAILY TAKEN BY MOUTH
     Route: 048

REACTIONS (9)
  - Erectile dysfunction [None]
  - Libido decreased [None]
  - Penis disorder [None]
  - Feeling abnormal [None]
  - Weight increased [None]
  - Cognitive disorder [None]
  - Memory impairment [None]
  - Hypogonadism [None]
  - Secondary hypogonadism [None]
